FAERS Safety Report 8906786 (Version 1)
Quarter: 2012Q4

REPORT INFORMATION
  Report Type: 
  Country: CO (occurrence: CO)
  Receive Date: 20121114
  Receipt Date: 20121114
  Transmission Date: 20130627
  Serious: Yes (Hospitalization)
  Sender: FDA-Public Use
  Company Number: CO-PFIZER INC-2012284172

PATIENT
  Age: 67 Year
  Sex: Male

DRUGS (4)
  1. AMLODIPINE BESILATE [Suspect]
     Indication: HYPERTENSION ARTERIAL
     Dosage: 5 mg, 2x/day
     Route: 048
     Dates: start: 2002
  2. METOPROLOL [Concomitant]
     Indication: HYPERTENSION ARTERIAL
     Dosage: 50 mg, 2x/day
     Route: 048
     Dates: start: 2002
  3. HYDROCHLOROTHIAZIDE [Concomitant]
     Dosage: 25 mg, 1x/day
     Route: 048
     Dates: start: 2002
  4. ACETYLSALICYLIC ACID [Concomitant]
     Indication: HYPERTENSION ARTERIAL
     Dosage: 100 mg, 1x/day
     Route: 048
     Dates: start: 2010

REACTIONS (3)
  - Cardiac pacemaker insertion [Unknown]
  - Heart rate decreased [Unknown]
  - Hypertension [Unknown]
